FAERS Safety Report 4322438-3 (Version None)
Quarter: 2004Q1

REPORT INFORMATION
  Report Type: 
  Country: None (occurrence: None)
  Receive Date: 20040319
  Receipt Date: 20040303
  Transmission Date: 20041129
  Serious: Yes (Hospitalization)
  Sender: FDA-Public Use
  Company Number: US069379

PATIENT
  Age: 65 Year
  Sex: Male

DRUGS (12)
  1. ETANERCEPT [Suspect]
     Indication: RHEUMATOID ARTHRITIS
     Dosage: 25 MG, 2 IN 1 WEEKS, SC
     Route: 058
     Dates: start: 19980723, end: 20021120
  2. FLUTICASONE PROPIONATE [Concomitant]
  3. PREDNISONE [Concomitant]
  4. ACETAMINOPHEN W/ CODEINE [Concomitant]
  5. POLYVIDONE [Concomitant]
  6. RETINOL [Concomitant]
  7. ATORVASTATIN [Concomitant]
  8. OROCAL VITAMIN D [Concomitant]
  9. UROXATRAL [Concomitant]
  10. ESOMEPRAZOLE MAGNESIUM [Concomitant]
  11. RISEDRONATE SODIUM [Concomitant]
  12. MOVICOL [Concomitant]

REACTIONS (2)
  - ARTHRALGIA [None]
  - RHEUMATOID LUNG [None]
